FAERS Safety Report 17454962 (Version 1)
Quarter: 2020Q1

REPORT INFORMATION
  Report Type: Spontaneous
  Country: DE (occurrence: DE)
  Receive Date: 20200225
  Receipt Date: 20200225
  Transmission Date: 20200409
  Serious: Yes (Other)
  Sender: FDA-Public Use
  Company Number: DE-ASTRAZENECA-2020SE18704

PATIENT
  Age: 44 Year
  Sex: Female

DRUGS (6)
  1. CONCOR COR [Concomitant]
     Active Substance: BISOPROLOL FUMARATE
     Dates: start: 20110201
  2. SEROQUEL [Suspect]
     Active Substance: QUETIAPINE FUMARATE
     Indication: RESTLESSNESS
     Dosage: 400 MG AND 25 MG
     Route: 048
  3. SEROQUEL [Suspect]
     Active Substance: QUETIAPINE FUMARATE
     Indication: RESTLESSNESS
     Route: 048
     Dates: start: 20110201
  4. LAMOTRIGIN HEXAL [Concomitant]
     Active Substance: LAMOTRIGINE
     Route: 065
     Dates: start: 20110201
  5. SEROQUEL [Suspect]
     Active Substance: QUETIAPINE FUMARATE
     Indication: RESTLESSNESS
     Route: 048
     Dates: start: 2008, end: 2017
  6. IXEL MILNACIPRAN [Concomitant]
     Route: 065
     Dates: start: 20150131

REACTIONS (6)
  - Disturbance in attention [Unknown]
  - Fatigue [Unknown]
  - Weight increased [Not Recovered/Not Resolved]
  - Frustration tolerance decreased [Unknown]
  - Increased appetite [Not Recovered/Not Resolved]
  - Liver function test abnormal [Unknown]

NARRATIVE: CASE EVENT DATE: 20120201
